FAERS Safety Report 7360128-3 (Version None)
Quarter: 2011Q1

REPORT INFORMATION
  Report Type: 
  Country: None (occurrence: None)
  Receive Date: 20110318
  Receipt Date: 20110308
  Transmission Date: 20110831
  Serious: Yes (Other)
  Sender: FDA-Public Use
  Company Number: US-BIOGENIDEC-2011BI008980

PATIENT
  Sex: Female

DRUGS (1)
  1. AVONEX [Suspect]
     Indication: MULTIPLE SCLEROSIS
     Route: 030
     Dates: start: 19960101

REACTIONS (9)
  - VITAMIN D DECREASED [None]
  - NEPHROPATHY [None]
  - GOITRE [None]
  - ANAPHYLACTIC SHOCK [None]
  - TRANSIENT ISCHAEMIC ATTACK [None]
  - APHASIA [None]
  - INFLUENZA LIKE ILLNESS [None]
  - PRURITUS [None]
  - DYSPNOEA [None]
